FAERS Safety Report 12331998 (Version 1)
Quarter: 2016Q2

REPORT INFORMATION
  Report Type: Spontaneous
  Country: US (occurrence: None)
  Receive Date: 20160503
  Receipt Date: 20160503
  Transmission Date: 20160815
  Serious: No
  Sender: FDA-Public Use
  Company Number: None

PATIENT
  Sex: Female

DRUGS (1)
  1. ATRIPLA [Suspect]
     Active Substance: EFAVIRENZ\EMTRICITABINE\TENOFOVIR DISOPROXIL FUMARATE
     Indication: HIV INFECTION
     Dosage: 600/200/300MG QD PO
     Route: 048
     Dates: start: 20131023

REACTIONS (3)
  - Somnolence [None]
  - Drug dose omission [None]
  - Feeling abnormal [None]

NARRATIVE: CASE EVENT DATE: 2016
